FAERS Safety Report 5587293-2 (Version None)
Quarter: 2008Q1

REPORT INFORMATION
  Report Type: 
  Country: None (occurrence: None)
  Receive Date: 20080110
  Receipt Date: 20080102
  Transmission Date: 20080703
  Serious: Yes (Hospitalization, Other)
  Sender: FDA-Public Use
  Company Number: US-ASTRAZENECA-2007UW24645

PATIENT
  Age: 73 Year
  Sex: Male

DRUGS (1)
  1. NEXIUM [Suspect]
     Indication: GASTROOESOPHAGEAL REFLUX DISEASE
     Route: 048
     Dates: start: 20050101

REACTIONS (19)
  - ABDOMINAL PAIN [None]
  - ANXIETY [None]
  - BLADDER CANCER [None]
  - CLOSTRIDIAL INFECTION [None]
  - COLD SWEAT [None]
  - CONSTIPATION [None]
  - DRUG INEFFECTIVE [None]
  - DYSPEPSIA [None]
  - GASTRIC POLYPS [None]
  - GASTROOESOPHAGEAL REFLUX DISEASE [None]
  - INSOMNIA [None]
  - INTESTINAL OBSTRUCTION [None]
  - NAUSEA [None]
  - NIGHT SWEATS [None]
  - NON-CARDIAC CHEST PAIN [None]
  - OESOPHAGEAL SPASM [None]
  - PROSTATE CANCER [None]
  - RASH ERYTHEMATOUS [None]
  - VOMITING [None]
